FAERS Safety Report 20711733 (Version 2)
Quarter: 2022Q2

REPORT INFORMATION
  Report Type: Spontaneous
  Country: FR (occurrence: FR)
  Receive Date: 20220414
  Receipt Date: 20220418
  Transmission Date: 20220721
  Serious: Yes (Hospitalization, Other)
  Sender: FDA-Public Use
  Company Number: None

PATIENT
  Age: 67 Year
  Sex: Male
  Weight: 90 kg

DRUGS (7)
  1. EFFEXOR [Suspect]
     Active Substance: VENLAFAXINE HYDROCHLORIDE
     Dosage: 750 MG, SINGLE
     Route: 048
     Dates: start: 20220217, end: 20220217
  2. INIPOMP [Suspect]
     Active Substance: PANTOPRAZOLE SODIUM
     Dosage: 280 MG
     Route: 048
     Dates: start: 20220217, end: 20220217
  3. MORPHINE SULFATE [Suspect]
     Active Substance: MORPHINE SULFATE
     Dosage: 70 MG
     Route: 048
     Dates: start: 20220217, end: 20220217
  4. DOLIPRANE [Suspect]
     Active Substance: ACETAMINOPHEN
     Dosage: 20 G
     Route: 048
     Dates: start: 20220217, end: 20220217
  5. SKENAN [Suspect]
     Active Substance: MORPHINE SULFATE
     Dosage: 70 MG
     Route: 048
     Dates: start: 20220217, end: 20220217
  6. MIRTAZAPINE [Suspect]
     Active Substance: MIRTAZAPINE
     Dosage: 90 MG
     Route: 048
     Dates: start: 20220217, end: 20220217
  7. ALLOPURINOL [Suspect]
     Active Substance: ALLOPURINOL
     Dosage: 1400 MG
     Route: 048
     Dates: start: 20220217, end: 20220217

REACTIONS (6)
  - Intentional overdose [Unknown]
  - Suicide attempt [Recovered/Resolved]
  - Miosis [Recovered/Resolved]
  - Coma [Recovered/Resolved]
  - Hypotension [Recovered/Resolved]
  - Bradypnoea [Recovered/Resolved]

NARRATIVE: CASE EVENT DATE: 20220217
